FAERS Safety Report 18120743 (Version 4)
Quarter: 2021Q2

REPORT INFORMATION
  Report Type: Report from Study
  Country: AR (occurrence: AR)
  Receive Date: 20200806
  Receipt Date: 20210627
  Transmission Date: 20210717
  Serious: Yes (Other)
  Sender: FDA-Public Use
  Company Number: PHHY2013AR143515

PATIENT
  Age: 60 Year
  Sex: Female

DRUGS (10)
  1. EXFORGE [Suspect]
     Active Substance: AMLODIPINE BESYLATE\VALSARTAN
     Dosage: 0.5 DF, QD (320/10 MG DAILY)
     Route: 048
  2. EXFORGE [Suspect]
     Active Substance: AMLODIPINE BESYLATE\VALSARTAN
     Dosage: UNK
     Route: 065
     Dates: start: 2016, end: 202105
  3. LEVOTHYROXINE. [Concomitant]
     Active Substance: LEVOTHYROXINE
     Indication: HYPOTHYROIDISM
     Dosage: 100 MG
     Route: 065
  4. DILATRANE [Concomitant]
     Indication: ENZYME LEVEL INCREASED
     Dosage: 12.5 MG, QD, STARTS 7 OR 8 YEARS AGO
     Route: 065
  5. EXFORGE [Suspect]
     Active Substance: AMLODIPINE BESYLATE\VALSARTAN
     Indication: HYPERTENSION
     Dosage: 0.5 TABLET (160/10 MG) DAILY
     Route: 048
     Dates: start: 20131028
  6. DILATREND [Concomitant]
     Active Substance: CARVEDILOL
     Indication: CARDIAC FAILURE
     Dosage: 1.5 MG, (1 MG AND A HALF)
     Route: 065
  7. EXFORGE [Suspect]
     Active Substance: AMLODIPINE BESYLATE\VALSARTAN
     Dosage: 1 DF, QD (320/10 MG DAILY)
     Route: 048
  8. EXFORGE [Suspect]
     Active Substance: AMLODIPINE BESYLATE\VALSARTAN
     Dosage: 1 DF, QD, 1 X 5/160 MG
     Route: 065
  9. SIMULTAN [THIORIDAZINE HYDROCHLORIDE] [Suspect]
     Active Substance: THIORIDAZINE HYDROCHLORIDE
     Indication: HYPERTENSION
     Dosage: 1 DF, QD
     Route: 065
  10. EXFORGE [Suspect]
     Active Substance: AMLODIPINE BESYLATE\VALSARTAN
     Dosage: 1 DF, QD (1 IN THE MORNING AND SOMETIMES HALF AT NIGHT)
     Route: 065

REACTIONS (17)
  - Cardiac disorder [Not Recovered/Not Resolved]
  - Blood pressure increased [Recovered/Resolved]
  - Panic disorder [Recovered/Resolved with Sequelae]
  - Dry mouth [Recovered/Resolved]
  - Blood pressure inadequately controlled [Recovering/Resolving]
  - Peripheral swelling [Recovered/Resolved]
  - Blood pressure increased [Unknown]
  - Fear [Unknown]
  - Wrong technique in product usage process [Recovered/Resolved]
  - Hypotension [Recovering/Resolving]
  - Hypertension [Recovered/Resolved]
  - Anxiety [Recovered/Resolved with Sequelae]
  - Hyperhidrosis [Recovered/Resolved]
  - Feeling abnormal [Recovered/Resolved with Sequelae]
  - Pulse abnormal [Unknown]
  - Dizziness [Recovered/Resolved]
  - Nervousness [Unknown]

NARRATIVE: CASE EVENT DATE: 20150712
